FAERS Safety Report 24259418 (Version 1)
Quarter: 2024Q3

REPORT INFORMATION
  Report Type: Spontaneous
  Country: US (occurrence: None)
  Receive Date: 20240827
  Receipt Date: 20240827
  Transmission Date: 20241016
  Serious: Yes (Other)
  Sender: Public
  Company Number: None

PATIENT
  Age: 54 Year
  Sex: Female
  Weight: 112.5 kg

DRUGS (6)
  1. DICYCLOMINE HYDROCHLORIDE [Suspect]
     Active Substance: DICYCLOMINE HYDROCHLORIDE
     Indication: Gastritis
     Dosage: 1 CAPSULE AS NEEDED ORAL
     Route: 048
     Dates: start: 20231009, end: 20240825
  2. OVER 50 WOMEN^S MULTI VITAMIN [Concomitant]
  3. HERBALS\TURMERIC [Concomitant]
     Active Substance: HERBALS\TURMERIC
  4. MACCULAR SUPPLEMENT [Concomitant]
  5. SOLAR D^S [Concomitant]
  6. COAO  MACHINE [Concomitant]

REACTIONS (12)
  - Toxicity to various agents [None]
  - Flushing [None]
  - Hyperhidrosis [None]
  - Dizziness [None]
  - Respiratory tract congestion [None]
  - Feeling abnormal [None]
  - Disorientation [None]
  - Headache [None]
  - Malaise [None]
  - Hangover [None]
  - Thirst [None]
  - Urine output decreased [None]

NARRATIVE: CASE EVENT DATE: 20240825
